FAERS Safety Report 8085327-7 (Version None)
Quarter: 2012Q1

REPORT INFORMATION
  Report Type: 
  Country: None (occurrence: None)
  Receive Date: 20120128
  Receipt Date: 20110423
  Transmission Date: 20120608
  Serious: No
  Sender: FDA-Public Use
  Company Number: US-ABBOTT-09P-163-0586752-00

PATIENT
  Sex: Male
  Weight: 72.64 kg

DRUGS (8)
  1. HUMIRA [Suspect]
     Indication: RHEUMATOID ARTHRITIS
     Dates: start: 20090901
  2. PREDNISONE TAB [Concomitant]
     Indication: RHEUMATOID ARTHRITIS
     Dosage: 2-3 MG DAILY
  3. OMEPRAZOLE [Concomitant]
     Indication: GASTRIC DISORDER
     Dosage: 20 MG DAILY
  4. HUMIRA [Suspect]
     Dates: start: 20090901
  5. HUMIRA [Suspect]
     Dates: start: 20090302
  6. FOSAMAX [Concomitant]
     Indication: BONE DISORDER
     Dosage: 70 MG DAILY
  7. HYDROCODONE BITARTRATE AND ACETAMINOPHEN [Concomitant]
     Indication: PAIN
     Dosage: 5/500 MG AS NEEDED
  8. CELEBREX [Concomitant]
     Indication: RHEUMATOID ARTHRITIS

REACTIONS (3)
  - BLOOD THYROID STIMULATING HORMONE DECREASED [None]
  - INJECTION SITE PAIN [None]
  - INJECTION SITE EXTRAVASATION [None]
